FAERS Safety Report 21550638 (Version 1)
Quarter: 2022Q4

REPORT INFORMATION
  Report Type: Spontaneous
  Country: US (occurrence: None)
  Receive Date: 20221103
  Receipt Date: 20221103
  Transmission Date: 20230113
  Serious: No
  Sender: FDA-Public Use
  Company Number: None

PATIENT
  Age: 9 Year
  Sex: Female
  Weight: 24.3 kg

DRUGS (4)
  1. MESALAMINE [Suspect]
     Active Substance: MESALAMINE
     Indication: Colitis ulcerative
     Dosage: OTHER FREQUENCY : 150MG AM 100 MGPM;?
     Route: 048
     Dates: start: 20221003, end: 20221017
  2. Uceris 9 mg PO QD [Concomitant]
  3. Omeprazole 20 mg QD [Concomitant]
  4. Claritin 10 mg QD [Concomitant]

REACTIONS (1)
  - Colitis ulcerative [None]

NARRATIVE: CASE EVENT DATE: 20221011
